FAERS Safety Report 5892731-1 (Version None)
Quarter: 2008Q3

REPORT INFORMATION
  Report Type: 
  Country: None (occurrence: None)
  Receive Date: 20080923
  Receipt Date: 20080918
  Transmission Date: 20090109
  Serious: Yes (Death, Other)
  Sender: FDA-Public Use
  Company Number: PHHY2008JP15600

PATIENT
  Sex: Female
  Weight: 37 kg

DRUGS (11)
  1. EXJADE [Suspect]
     Indication: IRON OVERLOAD
     Dosage: 750 MG/DAY
     Route: 048
     Dates: start: 20080707, end: 20080719
  2. PREDNISOLONE [Concomitant]
     Indication: APLASIA PURE RED CELL
     Dosage: 10 MG/DAY
     Route: 048
     Dates: start: 20030414
  3. NEORAL [Concomitant]
     Indication: APLASIA PURE RED CELL
     Dosage: 100 MG/DAY
     Route: 048
     Dates: start: 20060707
  4. AMARYL [Concomitant]
     Indication: DIABETES MELLITUS
     Dosage: 0.5 MG/DAY
     Route: 048
     Dates: start: 20030414
  5. NU-LOTAN [Concomitant]
     Indication: HYPERTENSION
     Dosage: 50 MG/DAY
     Route: 048
     Dates: start: 20031218
  6. OMEPRAZOLE [Concomitant]
     Indication: PROPHYLAXIS AGAINST GASTROINTESTINAL ULCER
     Dosage: 20 MG/DAY
     Route: 048
     Dates: start: 20070824
  7. PANALDINE [Concomitant]
     Indication: CEREBRAL INFARCTION
     Dosage: 100 MG/DAY
     Route: 048
     Dates: start: 20030414
  8. AMLODIPINE BESYLATE [Concomitant]
     Indication: HYPERTENSION
     Dosage: 5 MG/DAY
     Route: 048
     Dates: start: 20040617
  9. PROMAC                                  /JPN/ [Concomitant]
     Indication: PROPHYLAXIS AGAINST GASTROINTESTINAL ULCER
     Dosage: 150 MG/DAY
     Route: 048
     Dates: start: 20070824
  10. BLOOD TRANSFUSION, AUXILIARY PRODUCTS [Concomitant]
     Dosage: UNK
     Dates: start: 20080718
  11. BLOOD TRANSFUSION, AUXILIARY PRODUCTS [Concomitant]
     Dosage: 2 UNK, UNK
     Dates: start: 20080801

REACTIONS (17)
  - ALANINE AMINOTRANSFERASE INCREASED [None]
  - ASPARTATE AMINOTRANSFERASE INCREASED [None]
  - BLOOD CREATININE INCREASED [None]
  - BLOOD UREA INCREASED [None]
  - DECREASED APPETITE [None]
  - DEHYDRATION [None]
  - DIARRHOEA [None]
  - DIZZINESS [None]
  - GAMMA-GLUTAMYLTRANSFERASE INCREASED [None]
  - HEPATIC FUNCTION ABNORMAL [None]
  - NAUSEA [None]
  - PLATELET COUNT DECREASED [None]
  - PYREXIA [None]
  - RENAL IMPAIRMENT [None]
  - SEPSIS [None]
  - URINE OUTPUT DECREASED [None]
  - WHITE BLOOD CELL COUNT DECREASED [None]
